FAERS Safety Report 5096727-1 (Version None)
Quarter: 2006Q3

REPORT INFORMATION
  Report Type: 
  Country: None (occurrence: None)
  Receive Date: 20060831
  Receipt Date: 20060815
  Transmission Date: 20061208
  Serious: Yes (Life-Threatening, Other)
  Sender: FDA-Public Use
  Company Number: 06-000877

PATIENT
  Age: 28 Year
  Sex: Female

DRUGS (2)
  1. TACLONEX [Suspect]
     Indication: PSORIASIS
     Dosage: 0.005/0.64% 1 APPLICATION QD, TOPICAL
     Route: 061
     Dates: start: 20060101
  2. DOXYCYCLINE [Concomitant]

REACTIONS (11)
  - ADRENAL INSUFFICIENCY [None]
  - CIRCULATORY COLLAPSE [None]
  - DIARRHOEA [None]
  - ENCEPHALITIS VIRAL [None]
  - FALL [None]
  - HEADACHE [None]
  - HIV INFECTION [None]
  - MENINGITIS [None]
  - PHOTOPHOBIA [None]
  - VIRAL INFECTION [None]
  - VOMITING [None]
